FAERS Safety Report 6171624-9 (Version None)
Quarter: 2009Q2

REPORT INFORMATION
  Report Type: 
  Country: None (occurrence: None)
  Receive Date: 20090428
  Receipt Date: 20090428
  Transmission Date: 20091009
  Serious: Yes (Other)
  Sender: FDA-Public Use
  Company Number: None

PATIENT
  Age: 50 Year
  Sex: Female
  Weight: 68.0396 kg

DRUGS (1)
  1. LESCOL XL [Suspect]
     Indication: LOW DENSITY LIPOPROTEIN INCREASED
     Dosage: ONE PER DAY PO
     Route: 048
     Dates: start: 20090330, end: 20090420

REACTIONS (7)
  - ARTHRALGIA [None]
  - CHROMATURIA [None]
  - FATIGUE [None]
  - INFLUENZA LIKE ILLNESS [None]
  - MIDDLE INSOMNIA [None]
  - MYALGIA [None]
  - THIRST [None]
